FAERS Safety Report 26196633 (Version 1)
Quarter: 2025Q4

REPORT INFORMATION
  Report Type: Spontaneous
  Country: ZA (occurrence: ZA)
  Receive Date: 20251224
  Receipt Date: 20251224
  Transmission Date: 20260118
  Serious: Yes (Life-Threatening, Hospitalization)
  Sender: MYLAN
  Company Number: ZA-MYLANLABS-2025M1109176

PATIENT
  Age: 15 Year
  Sex: Male

DRUGS (20)
  1. AMLODIPINE [Suspect]
     Active Substance: AMLODIPINE BESYLATE
     Indication: Product used for unknown indication
     Dosage: 240 MILLIGRAM (PILL)
     Route: 061
  2. EPINEPHRINE [Suspect]
     Active Substance: EPINEPHRINE
     Indication: Overdose
     Dosage: 0.01 MICROGRAM/KILOGRAM, QMINUTE
  3. EPINEPHRINE [Suspect]
     Active Substance: EPINEPHRINE
     Indication: Shock
     Dosage: 0.5 MICROGRAM/KILOGRAM, QMINUTE (INCREASED)
  4. EPINEPHRINE [Suspect]
     Active Substance: EPINEPHRINE
     Indication: Vasoplegia syndrome
     Dosage: 1 MICROGRAM/KILOGRAM, QMINUTE (ESCALATED)
  5. EPINEPHRINE [Suspect]
     Active Substance: EPINEPHRINE
     Dosage: 0.82 MICROGRAM/KILOGRAM, QMINUTE, REDUCED TO 0.82??G/KG/MIN
  6. EPINEPHRINE [Suspect]
     Active Substance: EPINEPHRINE
     Dosage: 0.3 MICROGRAM/KILOGRAM, QMINUTE
  7. SIMVASTATIN [Suspect]
     Active Substance: SIMVASTATIN
     Indication: Product used for unknown indication
     Dosage: 240 MILLIGRAM (PILL)
     Route: 061
  8. ENALAPRIL [Suspect]
     Active Substance: ENALAPRIL
     Indication: Product used for unknown indication
     Dosage: 240 MILLIGRAM (PILL)
     Route: 061
  9. CALCIUM GLUCONATE [Suspect]
     Active Substance: CALCIUM GLUCONATE
     Indication: Overdose
     Dosage: 10 MILLILITER
  10. CALCIUM GLUCONATE [Suspect]
     Active Substance: CALCIUM GLUCONATE
     Indication: Shock
  11. CALCIUM GLUCONATE [Suspect]
     Active Substance: CALCIUM GLUCONATE
     Indication: Vasoplegia syndrome
  12. INSULIN NOS [Suspect]
     Active Substance: INSULIN NOS
     Indication: Overdose
     Dosage: 2 INTERNATIONAL UNIT/KILOGRAM, QH
  13. INSULIN NOS [Suspect]
     Active Substance: INSULIN NOS
     Indication: Shock
     Dosage: 6 INTERNATIONAL UNIT/KILOGRAM, QH (INCREASED)
  14. INSULIN NOS [Suspect]
     Active Substance: INSULIN NOS
     Indication: Vasoplegia syndrome
  15. DEXTROSE [Suspect]
     Active Substance: DEXTROSE MONOHYDRATE
     Indication: Overdose
     Dosage: 2 INTERNATIONAL UNIT/KILOGRAM, QH
  16. DEXTROSE [Suspect]
     Active Substance: DEXTROSE MONOHYDRATE
     Indication: Shock
     Dosage: 6 INTERNATIONAL UNIT/KILOGRAM, QH (INCREASED)
  17. DEXTROSE [Suspect]
     Active Substance: DEXTROSE MONOHYDRATE
     Indication: Vasoplegia syndrome
  18. VASOPRESSIN [Suspect]
     Active Substance: VASOPRESSIN
     Indication: Overdose
     Dosage: UNK, QMINUTE, 0.03?UNITS/MINUTE
  19. VASOPRESSIN [Suspect]
     Active Substance: VASOPRESSIN
     Indication: Shock
     Dosage: UNK, QMINUTE, 0.2?UNITS/MIN AND WEANED OFF
  20. VASOPRESSIN [Suspect]
     Active Substance: VASOPRESSIN
     Indication: Vasoplegia syndrome

REACTIONS (14)
  - Overdose [Recovered/Resolved]
  - Hypotension [Recovered/Resolved]
  - Acute kidney injury [Recovered/Resolved]
  - Shock [Recovered/Resolved]
  - Anuria [Recovered/Resolved]
  - Pulmonary oedema [Recovered/Resolved]
  - Respiratory failure [Recovered/Resolved]
  - Generalised tonic-clonic seizure [Recovered/Resolved]
  - Hypoglycaemia [Recovered/Resolved]
  - Hypoglycaemic seizure [Recovered/Resolved]
  - Multiple organ dysfunction syndrome [Recovered/Resolved]
  - Circulatory collapse [Recovered/Resolved]
  - Vasoplegia syndrome [Recovered/Resolved]
  - Drug ineffective [Unknown]
